FAERS Safety Report 10023817 (Version 1)
Quarter: 2014Q1

REPORT INFORMATION
  Report Type: Spontaneous
  Country: US (occurrence: US)
  Receive Date: 20140320
  Receipt Date: 20140320
  Transmission Date: 20141002
  Serious: No
  Sender: FDA-Public Use
  Company Number: US-B.I. PHARMACEUTICALS,INC./RIDGEFIELD-2014-BI-11248BP

PATIENT
  Age: 58 Year
  Sex: Female
  Weight: 94 kg

DRUGS (3)
  1. MICARDIS [Suspect]
     Indication: HYPERTENSION
     Dosage: 40 MG
     Route: 048
     Dates: start: 2008
  2. ADVAIR [Concomitant]
     Indication: RUBBER SENSITIVITY
     Route: 055
  3. QVAR [Concomitant]
     Indication: RUBBER SENSITIVITY
     Route: 055

REACTIONS (3)
  - Hypertension [Not Recovered/Not Resolved]
  - Anxiety [Not Recovered/Not Resolved]
  - Abnormal loss of weight [Not Recovered/Not Resolved]
